FAERS Safety Report 7834405-3 (Version None)
Quarter: 2011Q4

REPORT INFORMATION
  Report Type: 
  Country: None (occurrence: None)
  Receive Date: 20111024
  Receipt Date: 20111018
  Transmission Date: 20120403
  Serious: Yes (Other)
  Sender: FDA-Public Use
  Company Number: US-ABBOTT-11P-163-0865874-00

PATIENT
  Sex: Female
  Weight: 74.456 kg

DRUGS (7)
  1. VITAMIN D [Concomitant]
     Indication: VITAMIN SUPPLEMENTATION
  2. CITALOPRAM [Concomitant]
     Indication: DEPRESSION
  3. HUMIRA [Suspect]
     Indication: RHEUMATOID ARTHRITIS
     Dates: start: 20030101, end: 20110301
  4. METHOTREXATE [Suspect]
     Indication: RHEUMATOID ARTHRITIS
     Dates: start: 20030101, end: 20070101
  5. HUMIRA [Suspect]
     Dates: start: 20110301
  6. AZOR [Concomitant]
     Indication: HYPERTENSION
  7. PRAVASTATIN [Concomitant]
     Indication: HYPERLIPIDAEMIA

REACTIONS (6)
  - LUNG INFECTION [None]
  - INJECTION SITE PAIN [None]
  - CHEST PAIN [None]
  - DYSPNOEA [None]
  - LUNG DISORDER [None]
  - RHEUMATOID ARTHRITIS [None]
